FAERS Safety Report 6706157-1 (Version None)
Quarter: 2010Q2

REPORT INFORMATION
  Report Type: 
  Country: None (occurrence: None)
  Receive Date: 20100429
  Receipt Date: 20100423
  Transmission Date: 20101027
  Serious: Yes (Death)
  Sender: FDA-Public Use
  Company Number: 2010US001380

PATIENT

DRUGS (2)
  1. PROGRAF [Suspect]
     Indication: INTESTINAL TRANSPLANT
  2. CORTICOSTEROID NOS (CORTICOSTEROID NOS) [Suspect]
     Indication: INTESTINAL TRANSPLANT

REACTIONS (2)
  - CEREBRAL ASPERGILLOSIS [None]
  - OFF LABEL USE [None]
